FAERS Safety Report 19536372 (Version 1)
Quarter: 2021Q3

REPORT INFORMATION
  Report Type: Spontaneous
  Country: US (occurrence: US)
  Receive Date: 20210714
  Receipt Date: 20210714
  Transmission Date: 20211014
  Serious: No
  Sender: FDA-Public Use
  Company Number: None

PATIENT
  Age: 43 Year
  Sex: Male
  Weight: 74 kg

DRUGS (2)
  1. TRAZODONE (TRAZODONE HCL 50MG TAB) [Suspect]
     Active Substance: TRAZODONE HYDROCHLORIDE
     Indication: INSOMNIA
     Route: 048
     Dates: start: 20151001
  2. ALPRAZOLAM (ALPRAZOLAM 0.25MG TAB [Suspect]
     Active Substance: ALPRAZOLAM
     Route: 048
     Dates: start: 20140618

REACTIONS (5)
  - Suicide attempt [None]
  - Drug screen positive [None]
  - Intentional overdose [None]
  - Toxicity to various agents [None]
  - Drug abuse [None]

NARRATIVE: CASE EVENT DATE: 20210527
